FAERS Safety Report 8890000 (Version 1)
Quarter: 2012Q4

REPORT INFORMATION
  Report Type: Spontaneous
  Country: JP (occurrence: None)
  Receive Date: 20121031
  Receipt Date: 20121031
  Transmission Date: 20130627
  Serious: Yes (Hospitalization)
  Sender: FDA-Public Use
  Company Number: AE-SPE-2012-021

PATIENT
  Age: 78 Year
  Sex: Male

DRUGS (4)
  1. MEIACT MS [Suspect]
     Route: 048
     Dates: start: 20120822, end: 20120825
  2. CERNITIN T-60/ CERNITIN GBX [Concomitant]
  3. SOLIFENACIN SUCCINATE [Concomitant]
  4. NORFLOXACIN [Concomitant]

REACTIONS (2)
  - Decreased appetite [None]
  - Haematemesis [None]
